FAERS Safety Report 16163973 (Version 1)
Quarter: 2019Q2

REPORT INFORMATION
  Report Type: Report from Study
  Country: JP (occurrence: JP)
  Receive Date: 20190405
  Receipt Date: 20190405
  Transmission Date: 20190711
  Serious: Yes (Hospitalization, Other)
  Sender: FDA-Public Use
  Company Number: JP-TEVA-2019-JP-1033381

PATIENT
  Age: 78 Year
  Sex: Female

DRUGS (2)
  1. TOSUFLOXACIN [Suspect]
     Active Substance: TOSUFLOXACIN TOSYLATE
     Indication: PRODUCT USED FOR UNKNOWN INDICATION
     Route: 065
  2. EXCELASE [Suspect]
     Active Substance: PANCRELIPASE
     Indication: PRODUCT USED FOR UNKNOWN INDICATION
     Route: 065

REACTIONS (3)
  - Acute kidney injury [Unknown]
  - Stevens-Johnson syndrome [Unknown]
  - Corneal opacity [Unknown]
